FAERS Safety Report 5009200-3 (Version None)
Quarter: 2006Q2

REPORT INFORMATION
  Report Type: 
  Country: None (occurrence: None)
  Receive Date: 20060519
  Receipt Date: 20060512
  Transmission Date: 20061013
  Serious: Yes (Other)
  Sender: FDA-Public Use
  Company Number: 2006-05-0889

PATIENT
  Age: 63 Year
  Sex: Female

DRUGS (2)
  1. NEOCLARITYN (DESLORATADINE) [Suspect]
     Indication: PROPHYLAXIS
     Dosage: ORAL
     Route: 048
  2. GRAPEFRUIT JUICE [Concomitant]

REACTIONS (3)
  - FOOD INTERACTION [None]
  - HYPERTENSION [None]
  - TACHYCARDIA [None]
